FAERS Safety Report 5782532-7 (Version None)
Quarter: 2008Q2

REPORT INFORMATION
  Report Type: 
  Country: None (occurrence: None)
  Receive Date: 20080623
  Receipt Date: 20080611
  Transmission Date: 20081010
  Serious: Yes (Other)
  Sender: FDA-Public Use
  Company Number: GB-PFIZER INC-2008045152

PATIENT
  Sex: Female
  Weight: 85 kg

DRUGS (1)
  1. CHANTIX [Suspect]
     Indication: SMOKING CESSATION THERAPY
     Route: 048
     Dates: start: 20070730, end: 20070901

REACTIONS (7)
  - ABNORMAL DREAMS [None]
  - GINGIVAL PAIN [None]
  - GINGIVAL SWELLING [None]
  - LOOSE TOOTH [None]
  - NAUSEA [None]
  - VOMITING [None]
  - WEIGHT INCREASED [None]
